FAERS Safety Report 8026533-7 (Version None)
Quarter: 2012Q1

REPORT INFORMATION
  Report Type: 
  Country: None (occurrence: None)
  Receive Date: 20120106
  Receipt Date: 20120104
  Transmission Date: 20120608
  Serious: Yes (Other)
  Sender: FDA-Public Use
  Company Number: DE-BRISTOL-MYERS SQUIBB COMPANY-16247769

PATIENT
  Age: 9 Year
  Sex: Male

DRUGS (1)
  1. ABILIFY [Suspect]
     Indication: TOURETTE'S DISORDER
     Dosage: SLOWLY UP-TITRATED FROM 0.5MG-7.5MG
     Route: 048
     Dates: start: 20110813

REACTIONS (1)
  - BLOOD PROLACTIN DECREASED [None]
